FAERS Safety Report 8628548 (Version 5)
Quarter: 2020Q3

REPORT INFORMATION
  Report Type: Report from Study
  Country: US (occurrence: US)
  Receive Date: 20120621
  Receipt Date: 20130517
  Transmission Date: 20201105
  Serious: Yes (Hospitalization)
  Sender: FDA-Public Use
  Company Number: US-ROCHE-1078079

PATIENT
  Age: 77 Year
  Sex: Male
  Weight: 69.01 kg

DRUGS (12)
  1. SIMVASTATIN. [Concomitant]
     Active Substance: SIMVASTATIN
     Indication: BLOOD CHOLESTEROL
     Route: 065
     Dates: start: 2009
  2. FOLINIC ACID [Suspect]
     Active Substance: LEUCOVORIN
     Indication: COLORECTAL CANCER METASTATIC
     Dosage: DATE OF MOST RECENT DOSE PRIOR TO SAE : 04/JUN/2012
     Route: 042
     Dates: start: 20111219
  3. MEGACE [Concomitant]
     Active Substance: MEGESTROL ACETATE
     Indication: WEIGHT DECREASED
     Route: 065
     Dates: start: 20120110, end: 20120616
  4. FLUOROURACIL. [Suspect]
     Active Substance: FLUOROURACIL
     Indication: COLORECTAL CANCER METASTATIC
     Dosage: MOST RECENT DOSE PRIOR TO SAE 04 JUN 2012.
     Route: 050
     Dates: start: 20111219
  5. RAPAFLO [Concomitant]
     Active Substance: SILODOSIN
     Route: 065
     Dates: start: 2002
  6. ZOFRAN [Concomitant]
     Active Substance: ONDANSETRON HYDROCHLORIDE
     Dosage: AS REQUIRED
     Route: 065
  7. ONARTUZUMAB. [Suspect]
     Active Substance: ONARTUZUMAB
     Indication: COLORECTAL CANCER METASTATIC
     Route: 042
     Dates: start: 20111219
  8. OXALIPLATIN. [Suspect]
     Active Substance: OXALIPLATIN
     Indication: COLORECTAL CANCER METASTATIC
     Dosage: MOST RECENT DOSE: 26 MAR 2012
     Route: 042
     Dates: start: 20111219
  9. MEGACE [Concomitant]
     Active Substance: MEGESTROL ACETATE
     Indication: INCREASED APPETITE
  10. PRILOSEC [Concomitant]
     Active Substance: OMEPRAZOLE MAGNESIUM
     Route: 065
  11. BEVACIZUMAB. [Suspect]
     Active Substance: BEVACIZUMAB
     Indication: COLORECTAL CANCER METASTATIC
     Dosage: DATE OF MOST RECENT DOSE PRIOR TO SAE : 04/JUN/2012
     Route: 042
     Dates: start: 20111219
  12. FLUOROURACIL. [Suspect]
     Active Substance: FLUOROURACIL
     Indication: COLORECTAL CANCER METASTATIC
     Dosage: MOST RECENT DOSE PRIOR TO SAE 04 JUN 2012.
     Route: 042
     Dates: start: 20111219

REACTIONS (1)
  - Orthostatic hypotension [Recovered/Resolved]

NARRATIVE: CASE EVENT DATE: 20120611
